FAERS Safety Report 5982605-X (Version None)
Quarter: 2008Q4

REPORT INFORMATION
  Report Type: 
  Country: None (occurrence: None)
  Receive Date: 20081208
  Receipt Date: 20081128
  Transmission Date: 20090506
  Serious: Yes (Hospitalization, Other)
  Sender: FDA-Public Use
  Company Number: PHMT2005CA00842

PATIENT
  Sex: Female

DRUGS (19)
  1. SANDOSTATIN LAR [Suspect]
     Indication: ANGIODYSPLASIA
     Dosage: 30 MG, ONCE A MONTH
     Dates: start: 20051014, end: 20060105
  2. SANDOSTATIN LAR [Suspect]
     Dosage: 30 MG, QMO
     Dates: end: 20060313
  3. ADVAIR HFA [Concomitant]
  4. APO-METOCLOP [Concomitant]
  5. CLONAZEPAM [Concomitant]
  6. DIGOXIN [Concomitant]
  7. FOLIC ACID [Concomitant]
  8. LASIX [Concomitant]
  9. ATORVASTATIN CALCIUM [Concomitant]
  10. LOSEC                                   /CAN/ [Concomitant]
  11. NITROGLYCERIN [Concomitant]
  12. NOVIRASIN [Concomitant]
  13. PLAVIX [Concomitant]
  14. PMS-CONJUGATED ESTROGENS [Concomitant]
  15. TIOTROPIUM BROMIDE [Concomitant]
  16. SYNTHROID [Concomitant]
  17. VERAPAMIL [Concomitant]
     Indication: HYPERTENSION
  18. VITAMIN B-12 [Concomitant]
     Route: 048
  19. VITAMIN B6 [Concomitant]

REACTIONS (20)
  - ANAL HAEMORRHAGE [None]
  - ASTHENIA [None]
  - BLOOD CREATINE INCREASED [None]
  - BLOOD IRON DECREASED [None]
  - BLOOD PRESSURE FLUCTUATION [None]
  - DIALYSIS [None]
  - DYSPNOEA [None]
  - EPISTAXIS [None]
  - HAEMOGLOBIN DECREASED [None]
  - HEART RATE DECREASED [None]
  - HYPERTENSION [None]
  - HYPOTENSION [None]
  - INJECTION SITE INDURATION [None]
  - INJECTION SITE PRURITUS [None]
  - INJECTION SITE RASH [None]
  - LUNG INFECTION [None]
  - NAUSEA [None]
  - RENAL DISORDER [None]
  - RENAL FAILURE [None]
  - RENAL IMPAIRMENT [None]
